FAERS Safety Report 12574333 (Version 3)
Quarter: 2018Q1

REPORT INFORMATION
  Report Type: Spontaneous
  Country: US (occurrence: US)
  Receive Date: 20160720
  Receipt Date: 20180207
  Transmission Date: 20180508
  Serious: No
  Sender: FDA-Public Use
  Company Number: US-LUNDBECK-DKLU2014702

PATIENT
  Sex: Male

DRUGS (3)
  1. NORTHERA [Suspect]
     Active Substance: DROXIDOPA
     Route: 065
  2. NORTHERA [Suspect]
     Active Substance: DROXIDOPA
     Indication: ORTHOSTATIC HYPOTENSION
     Dosage: TITRATION SCHEDULE C
     Route: 065
     Dates: start: 20160530, end: 20171101
  3. FINASTERIDE. [Suspect]
     Active Substance: FINASTERIDE
     Indication: PROSTATOMEGALY
     Route: 065

REACTIONS (7)
  - Blood pressure increased [Recovering/Resolving]
  - Drug dose omission [Unknown]
  - Blood pressure fluctuation [Recovering/Resolving]
  - Blood pressure decreased [Unknown]
  - Drug ineffective [Unknown]
  - Incorrect dose administered [Unknown]
  - Prostatomegaly [Recovering/Resolving]
